FAERS Safety Report 25745614 (Version 2)
Quarter: 2025Q3

REPORT INFORMATION
  Report Type: Spontaneous
  Country: CO (occurrence: CO)
  Receive Date: 20250901
  Receipt Date: 20250908
  Transmission Date: 20251020
  Serious: Yes (Hospitalization)
  Sender: REGENERON
  Company Number: CO-SA-2025SA254746

PATIENT
  Age: 72 Year
  Sex: Male

DRUGS (1)
  1. PRALUENT [Suspect]
     Active Substance: ALIROCUMAB
     Indication: Hypercholesterolaemia
     Dosage: 75 MG, QOW, SOLUTION FOR INJECTION
     Route: 058

REACTIONS (8)
  - Oxygen saturation decreased [Recovered/Resolved]
  - Decreased appetite [Recovered/Resolved]
  - Kidney small [Unknown]
  - Renal disorder [Unknown]
  - Illness [Unknown]
  - Pain in extremity [Unknown]
  - Feeling cold [Unknown]
  - Muscle spasms [Unknown]

NARRATIVE: CASE EVENT DATE: 20250807
